FAERS Safety Report 6249324-6 (Version None)
Quarter: 2009Q2

REPORT INFORMATION
  Report Type: 
  Country: None (occurrence: None)
  Receive Date: 20090629
  Receipt Date: 20090618
  Transmission Date: 20091009
  Serious: Yes (Other)
  Sender: FDA-Public Use
  Company Number: A0789378A

PATIENT
  Sex: Female
  Weight: 54 kg

DRUGS (5)
  1. NIQUITIN [Suspect]
     Indication: SMOKING CESSATION THERAPY
     Dosage: 21MG PER DAY
     Route: 062
     Dates: start: 20090603
  2. ACEBROPHYLLINE [Concomitant]
     Dosage: 5ML TWICE PER DAY
  3. STUGERON [Concomitant]
     Dosage: 75MG PER DAY
     Route: 048
  4. OMEPRAZOL [Concomitant]
     Dosage: 40MG PER DAY
     Route: 048
  5. IBUPROFEN [Concomitant]
     Dosage: 600MG PER DAY

REACTIONS (5)
  - APPLICATION SITE IRRITATION [None]
  - CHEST PAIN [None]
  - DYSPNOEA [None]
  - LUNG NEOPLASM [None]
  - PAIN IN EXTREMITY [None]
